FAERS Safety Report 24462461 (Version 1)
Quarter: 2024Q4

REPORT INFORMATION
  Report Type: Spontaneous
  Country: US (occurrence: None)
  Receive Date: 20241018
  Receipt Date: 20241018
  Transmission Date: 20250115
  Serious: Yes (Death)
  Sender: Public
  Company Number: None

PATIENT
  Sex: Male

DRUGS (11)
  1. XDEMVY [Suspect]
     Active Substance: LOTILANER
     Indication: Demodex blepharitis
     Route: 047
     Dates: start: 20240917
  2. AMIODARONE [Concomitant]
     Active Substance: AMIODARONE
  3. AMMONIUM LAC CRE 12% [Concomitant]
  4. ARTIFICIAL ORO TEARS [Concomitant]
  5. ATORVASTATIN [Concomitant]
     Active Substance: ATORVASTATIN
  6. CARVEDILOL [Concomitant]
     Active Substance: CARVEDILOL
  7. CLOPIDOGREL TAB 75MG [Concomitant]
  8. CYCLOBENZAPRTAB10MG [Concomitant]
  9. DIAZEPAM TAB 2MG [Concomitant]
  10. DOXYCYC MONO CAP 1 00MG [Concomitant]
  11. ENTRESTO [Concomitant]
     Active Substance: SACUBITRIL\VALSARTAN

REACTIONS (1)
  - Death [None]
